FAERS Safety Report 9384239 (Version 2)
Quarter: 2013Q3

REPORT INFORMATION
  Report Type: Spontaneous
  Country: US (occurrence: US)
  Receive Date: 20130705
  Receipt Date: 20130806
  Transmission Date: 20140515
  Serious: Yes (Hospitalization)
  Sender: FDA-Public Use
  Company Number: US-ROCHE-1242992

PATIENT
  Age: 59 Year
  Sex: Female

DRUGS (1)
  1. ACTEMRA [Suspect]
     Indication: RHEUMATOID ARTHRITIS
     Route: 065
     Dates: start: 2012

REACTIONS (8)
  - Abdominal pain [Recovering/Resolving]
  - Intestinal ischaemia [Recovering/Resolving]
  - White blood cell count increased [Recovering/Resolving]
  - Haemoglobin decreased [Recovering/Resolving]
  - Thrombosis [Recovering/Resolving]
  - Local swelling [Recovering/Resolving]
  - Asthenia [Recovering/Resolving]
  - Grip strength decreased [Unknown]
